FAERS Safety Report 8769584 (Version 3)
Quarter: 2013Q1

REPORT INFORMATION
  Report Type: Spontaneous
  Country: JP (occurrence: JP)
  Receive Date: 20120905
  Receipt Date: 20130304
  Transmission Date: 20140127
  Serious: Yes (Other)
  Sender: FDA-Public Use
  Company Number: PHHY2012JP076504

PATIENT
  Age: 80 Year
  Sex: Male
  Weight: 46 kg

DRUGS (4)
  1. ZOMETA [Suspect]
     Indication: METASTASES TO BONE
     Dosage: 3.3 MG, (PER ADMINISTRATION)
     Route: 041
     Dates: start: 20091203, end: 20110623
  2. DEXAMETHASONE [Concomitant]
     Dosage: 2 DF, DAILY
     Route: 048
     Dates: start: 20100623, end: 20120821
  3. ZOLADEX [Concomitant]
     Dosage: 3.6 MG, UNK
     Route: 058
     Dates: start: 20091203
  4. URITOS [Concomitant]
     Dosage: 0.2 MG, UNK
     Route: 048
     Dates: start: 20100204

REACTIONS (12)
  - Osteonecrosis of jaw [Not Recovered/Not Resolved]
  - Gingival erythema [Unknown]
  - Gingival swelling [Unknown]
  - Gingival infection [Unknown]
  - Pain in jaw [Unknown]
  - Gingival pain [Unknown]
  - Bone lesion [Unknown]
  - Exposed bone in jaw [Unknown]
  - Purulent discharge [Unknown]
  - Osteomyelitis [Unknown]
  - Bone fistula [Unknown]
  - Periodontitis [Not Recovered/Not Resolved]
